FAERS Safety Report 19263830 (Version 1)
Quarter: 2021Q2

REPORT INFORMATION
  Report Type: Spontaneous
  Country: US (occurrence: US)
  Receive Date: 20210517
  Receipt Date: 20210517
  Transmission Date: 20210717
  Serious: No
  Sender: FDA-Public Use
  Company Number: US-SA-2021SA159401

PATIENT
  Sex: Male

DRUGS (3)
  1. KEPPRA [Concomitant]
     Active Substance: LEVETIRACETAM
  2. ALLEGRA ALLERGY [Concomitant]
     Active Substance: FEXOFENADINE HYDROCHLORIDE
  3. DUPIXENT [Suspect]
     Active Substance: DUPILUMAB
     Indication: NASAL POLYPS
     Dosage: 300 MG, QOW
     Route: 058
     Dates: start: 202001

REACTIONS (1)
  - Therapeutic response decreased [Unknown]
